FAERS Safety Report 11811445 (Version 2)
Quarter: 2015Q4

REPORT INFORMATION
  Report Type: Spontaneous
  Country: US (occurrence: US)
  Receive Date: 20151208
  Receipt Date: 20151229
  Transmission Date: 20160305
  Serious: No
  Sender: FDA-Public Use
  Company Number: US-PFIZER INC-2015424651

PATIENT
  Sex: Female

DRUGS (4)
  1. ADVIL [Suspect]
     Active Substance: IBUPROFEN
     Indication: MYALGIA
     Dosage: UNK
  2. TYLENOL [Suspect]
     Active Substance: ACETAMINOPHEN
     Indication: HEADACHE
     Dosage: UNK
  3. ADVIL [Suspect]
     Active Substance: IBUPROFEN
     Indication: HEADACHE
  4. EXCEDRIN [Suspect]
     Active Substance: ACETAMINOPHEN\ASPIRIN\CAFFEINE
     Indication: MIGRAINE
     Dosage: UNK

REACTIONS (2)
  - Drug ineffective [Unknown]
  - Intentional product misuse [Unknown]
